FAERS Safety Report 24157924 (Version 8)
Quarter: 2025Q1

REPORT INFORMATION
  Report Type: Report from Study
  Country: FI (occurrence: FI)
  Receive Date: 20240731
  Receipt Date: 20250318
  Transmission Date: 20250409
  Serious: Yes (Hospitalization, Other)
  Sender: BLUEPRINT MEDICINES
  Company Number: FI-Blueprint Medicines Corporation-SO-FI-2024-001485

PATIENT
  Age: 58 Year
  Sex: Male
  Weight: 91.6 kg

DRUGS (22)
  1. AVAPRITINIB [Suspect]
     Active Substance: AVAPRITINIB
     Indication: Gastrointestinal stromal tumour
     Dosage: 300 MG ON MONDAYS, TUESDAYS, FRIDAYS, AND SATURDAYS
     Route: 065
     Dates: start: 20220223
  2. AVAPRITINIB [Suspect]
     Active Substance: AVAPRITINIB
     Dosage: 200 MG ON WEDNESDAYS AND SUNDAYS
     Route: 065
     Dates: start: 20220223
  3. AVAPRITINIB [Suspect]
     Active Substance: AVAPRITINIB
     Route: 065
     Dates: end: 20240720
  4. AVAPRITINIB [Suspect]
     Active Substance: AVAPRITINIB
     Dosage: ALTERNATE DOSE OF 200 AND 300MG
     Route: 065
     Dates: start: 20240726
  5. AVAPRITINIB [Suspect]
     Active Substance: AVAPRITINIB
     Dosage: ALTERNATE DOSE OF 200 AND 300MG
     Route: 065
     Dates: start: 20240726
  6. AVAPRITINIB [Suspect]
     Active Substance: AVAPRITINIB
     Dosage: ALTERNATE DOSE OF 200 AND 300MG
     Route: 065
     Dates: start: 20220223, end: 20240720
  7. AVAPRITINIB [Suspect]
     Active Substance: AVAPRITINIB
     Dosage: ALTERNATE DOSE OF 200 AND 300MG
     Route: 065
     Dates: start: 20220223, end: 20240720
  8. AVAPRITINIB [Suspect]
     Active Substance: AVAPRITINIB
     Route: 048
     Dates: start: 20220223, end: 20240910
  9. AVAPRITINIB [Suspect]
     Active Substance: AVAPRITINIB
     Route: 065
     Dates: start: 20240823
  10. AVAPRITINIB [Suspect]
     Active Substance: AVAPRITINIB
     Route: 048
     Dates: start: 20241028
  11. AVAPRITINIB [Suspect]
     Active Substance: AVAPRITINIB
     Route: 065
     Dates: start: 20180822, end: 20211231
  12. AVAPRITINIB [Suspect]
     Active Substance: AVAPRITINIB
     Dosage: 200 MG ON WEDNESDAYS AND SUNDAYS
     Route: 065
     Dates: start: 20220223
  13. AVAPRITINIB [Suspect]
     Active Substance: AVAPRITINIB
     Route: 065
     Dates: end: 20240720
  14. AVAPRITINIB [Suspect]
     Active Substance: AVAPRITINIB
     Dosage: 300 MG ON MONDAYS, TUESDAYS, FRIDAYS AND SATURDAYS
     Route: 065
     Dates: start: 20220223
  15. AVAPRITINIB [Suspect]
     Active Substance: AVAPRITINIB
     Route: 065
  16. LOSARTAN [Concomitant]
     Active Substance: LOSARTAN
     Indication: Hypertension
     Route: 048
  17. ASPIRIN [Concomitant]
     Active Substance: ASPIRIN
     Indication: Cardiovascular event prophylaxis
     Route: 048
     Dates: start: 2022, end: 20240909
  18. ASPIRIN [Concomitant]
     Active Substance: ASPIRIN
     Indication: Coronary artery disease
     Route: 048
  19. PANTOPRAZOLE SODIUM [Concomitant]
     Active Substance: PANTOPRAZOLE SODIUM
     Indication: Anaemia
     Route: 042
     Dates: start: 20240719
  20. PANTOPRAZOLE SODIUM [Concomitant]
     Active Substance: PANTOPRAZOLE SODIUM
     Indication: Prophylaxis
     Route: 048
     Dates: start: 20240720
  21. PANTOPRAZOLE SODIUM [Concomitant]
     Active Substance: PANTOPRAZOLE SODIUM
     Route: 065
     Dates: start: 20240705
  22. LOSARTAN AND HYDROCHLOROTHIAZIDE [Concomitant]
     Active Substance: HYDROCHLOROTHIAZIDE\LOSARTAN POTASSIUM
     Indication: Hypertension
     Route: 048
     Dates: start: 2022

REACTIONS (4)
  - Haemorrhage [Recovered/Resolved]
  - Faeces discoloured [Recovered/Resolved]
  - Gastric ulcer [Recovered/Resolved]
  - Anaemia [Recovered/Resolved]

NARRATIVE: CASE EVENT DATE: 20240719
